FAERS Safety Report 4277384-0 (Version None)
Quarter: 2004Q1

REPORT INFORMATION
  Report Type: 
  Country: None (occurrence: None)
  Receive Date: 20040122
  Receipt Date: 19990520
  Transmission Date: 20041129
  Serious: Yes (Other)
  Sender: FDA-Public Use
  Company Number: 199912395HMRI

PATIENT
  Sex: Female
  Weight: 65 kg

DRUGS (19)
  1. ARAVA [Suspect]
     Indication: RHEUMATOID ARTHRITIS
     Dates: start: 19981207, end: 19990312
  2. VICODIN [Concomitant]
     Indication: PAIN
  3. TRAZODONE HCL [Concomitant]
  4. PRILOSEC [Concomitant]
  5. NEURONTIN [Concomitant]
  6. HUMULIN R [Concomitant]
     Indication: DIABETES MELLITUS INSULIN-DEPENDENT
     Dosage: DOSE UNIT: UNITS
     Route: 058
  7. PREDNISONE [Concomitant]
  8. AMITRIPTYLINE HCL [Concomitant]
     Indication: PAIN
  9. ATENOLOL [Concomitant]
     Indication: HYPERTENSION
  10. GOLD INJECTION [Concomitant]
     Dosage: DOSE: UNK
  11. PENICILLAMINE [Concomitant]
     Dosage: DOSE: UNK
  12. PROCARDIA [Concomitant]
     Dosage: DOSE: UNK
  13. CEPHALEXIN [Concomitant]
     Dosage: DOSE: UNK
  14. CIPRO [Concomitant]
     Dosage: DOSE: UNK
  15. GLYBURIDE [Concomitant]
     Dosage: DOSE: UNK
  16. HUMULIN U [Concomitant]
     Indication: DIABETES MELLITUS INSULIN-DEPENDENT
     Dosage: DOSE: UNK
  17. HUMULIN N [Concomitant]
     Indication: DIABETES MELLITUS INSULIN-DEPENDENT
     Dosage: DOSE: UNK
  18. MULTIVITAMIN [Concomitant]
     Dosage: DOSE: UNK
  19. METAMUCIL-2 [Concomitant]
     Dosage: DOSE: UNK

REACTIONS (14)
  - ANAEMIA [None]
  - ANOREXIA [None]
  - ASTHENIA [None]
  - CHOLESTASIS [None]
  - EATING DISORDER [None]
  - FATIGUE [None]
  - FEELING ABNORMAL [None]
  - HEPATIC STEATOSIS [None]
  - OESOPHAGEAL CANDIDIASIS [None]
  - OSTEOMYELITIS [None]
  - PRURITUS [None]
  - SPEECH DISORDER [None]
  - TOE AMPUTATION [None]
  - WEIGHT DECREASED [None]
